FAERS Safety Report 19061653 (Version 1)
Quarter: 2021Q1

REPORT INFORMATION
  Report Type: Spontaneous
  Country: GB (occurrence: GB)
  Receive Date: 20210326
  Receipt Date: 20210326
  Transmission Date: 20210420
  Serious: Yes (Hospitalization)
  Sender: FDA-Public Use
  Company Number: GB-ASTELLAS-2021US006113

PATIENT
  Age: 3 Year
  Sex: Female

DRUGS (1)
  1. PROGRAF [Suspect]
     Active Substance: TACROLIMUS
     Indication: PRODUCT USED FOR UNKNOWN INDICATION
     Dosage: 0.9 MG, TWICE DAILY
     Route: 065

REACTIONS (2)
  - Dyspnoea [Recovering/Resolving]
  - Tonsillar hypertrophy [Recovering/Resolving]
